FAERS Safety Report 7900044-9 (Version None)
Quarter: 2011Q4

REPORT INFORMATION
  Report Type: 
  Country: None (occurrence: None)
  Receive Date: 20111108
  Receipt Date: 20111101
  Transmission Date: 20120403
  Serious: Yes (Hospitalization)
  Sender: FDA-Public Use
  Company Number: US-BIOGENIDEC-2011BI036687

PATIENT
  Age: 45 Year
  Sex: Female

DRUGS (1)
  1. TYSABRI [Suspect]
     Indication: MULTIPLE SCLEROSIS
     Route: 042
     Dates: start: 20100628, end: 20110428

REACTIONS (8)
  - DEHYDRATION [None]
  - BLOOD PRESSURE ABNORMAL [None]
  - SEPSIS [None]
  - DRUG INEFFECTIVE [None]
  - URINARY TRACT INFECTION [None]
  - LIGAMENT SPRAIN [None]
  - FALL [None]
  - FIBULA FRACTURE [None]
